FAERS Safety Report 17185443 (Version 1)
Quarter: 2019Q4

REPORT INFORMATION
  Report Type: Spontaneous
  Country: None (occurrence: CO)
  Receive Date: 20191220
  Receipt Date: 20191220
  Transmission Date: 20200122
  Serious: Yes (Death)
  Sender: FDA-Public Use
  Company Number: CO-RECORDATI RARE DISEASES-2078058

PATIENT
  Age: 7 Month
  Sex: Female
  Weight: 6.7 kg

DRUGS (3)
  1. CARBAGLU [Suspect]
     Active Substance: CARGLUMIC ACID
     Indication: HYPERGLYCINAEMIA
     Route: 048
     Dates: start: 20190514, end: 20191203
  2. LEVETIRACETAM. [Concomitant]
     Active Substance: LEVETIRACETAM
  3. CARNITINE [Concomitant]
     Active Substance: CARNITINE

REACTIONS (11)
  - Ammonia abnormal [Fatal]
  - Acidosis [Fatal]
  - Decreased activity [Fatal]
  - Hyperglycaemia [Fatal]
  - Hypotension [Fatal]
  - Metabolic disorder [Fatal]
  - Influenza [Fatal]
  - Dyspnoea [Fatal]
  - Somnolence [Fatal]
  - Endotracheal intubation [Fatal]
  - PO2 abnormal [Fatal]

NARRATIVE: CASE EVENT DATE: 201912
